FAERS Safety Report 6468619-4 (Version None)
Quarter: 2009Q4

REPORT INFORMATION
  Report Type: 
  Country: None (occurrence: None)
  Receive Date: 20091203
  Receipt Date: 20091125
  Transmission Date: 20100525
  Serious: No
  Sender: FDA-Public Use
  Company Number: CA-ROCHE-666127

PATIENT
  Age: 2 Year
  Sex: Male

DRUGS (2)
  1. TAMIFLU [Suspect]
     Indication: INFLUENZA
     Dosage: OVERDOSE (5 TIMES THE PRESCRIBED DOSE)
     Route: 048
     Dates: start: 20091103, end: 20091103
  2. TAMIFLU [Suspect]
     Route: 048
     Dates: start: 20091102

REACTIONS (2)
  - OVERDOSE [None]
  - VOMITING [None]
